FAERS Safety Report 12139286 (Version 1)
Quarter: 2016Q1

REPORT INFORMATION
  Report Type: Spontaneous
  Country: US (occurrence: US)
  Receive Date: 20160303
  Receipt Date: 20160303
  Transmission Date: 20160526
  Serious: No
  Sender: FDA-Public Use
  Company Number: US-ACCORD-035963

PATIENT
  Sex: Female

DRUGS (1)
  1. CISPLATIN ACCORD [Suspect]
     Active Substance: CISPLATIN
     Indication: CERVIX CARCINOMA

REACTIONS (2)
  - Off label use [Unknown]
  - Treatment failure [Unknown]
